FAERS Safety Report 7329972-2 (Version None)
Quarter: 2011Q1

REPORT INFORMATION
  Report Type: 
  Country: None (occurrence: None)
  Receive Date: 20110303
  Receipt Date: 20110223
  Transmission Date: 20110831
  Serious: No
  Sender: FDA-Public Use
  Company Number: US-BAYER-201038190NA

PATIENT
  Sex: Female
  Weight: 83.447 kg

DRUGS (4)
  1. MIRENA [Suspect]
     Indication: CONTRACEPTION
     Dosage: FREQUENCY CONTINOUS
     Route: 015
     Dates: start: 20101006, end: 20101022
  2. SYNTHROID [Concomitant]
     Dosage: 110 UNK, UNK
  3. INSULIN [Suspect]
  4. ALDOMET [Concomitant]
     Dosage: UNK
     Dates: start: 20100129

REACTIONS (1)
  - PREGNANCY WITH CONTRACEPTIVE DEVICE [None]
